FAERS Safety Report 17407114 (Version 3)
Quarter: 2020Q2

REPORT INFORMATION
  Report Type: Report from Study
  Country: US (occurrence: US)
  Receive Date: 20200212
  Receipt Date: 20200618
  Transmission Date: 20200713
  Serious: Yes (Disabling, Other)
  Sender: FDA-Public Use
  Company Number: US-REGENERON PHARMACEUTICALS, INC.-2020-17543

PATIENT

DRUGS (4)
  1. EYLEA [Suspect]
     Active Substance: AFLIBERCEPT
     Dosage: 2MG, EVERY 4-6 WEEKS, BOTH EYES
     Route: 031
     Dates: start: 20200121, end: 20200121
  2. EYLEA [Suspect]
     Active Substance: AFLIBERCEPT
     Dosage: 2MG, EVERY 4-6 WEEKS, BOTH EYES
     Route: 031
     Dates: start: 20191210, end: 20191210
  3. EYLEA [Suspect]
     Active Substance: AFLIBERCEPT
     Indication: CHOROIDAL NEOVASCULARISATION
     Dosage: 2MG, EVERY 4-6 WEEKS, LEFT EYE
     Route: 031
     Dates: start: 20170808, end: 20170808
  4. EYLEA [Suspect]
     Active Substance: AFLIBERCEPT
     Indication: NEOVASCULAR AGE-RELATED MACULAR DEGENERATION
     Dosage: 2MG, EVERY 4-6 WEEKS, LEFT EYE
     Route: 031
     Dates: start: 20170613

REACTIONS (4)
  - Blindness transient [Recovered/Resolved]
  - Eye pain [Recovered/Resolved]
  - Visual acuity reduced [Unknown]
  - Vision blurred [Unknown]

NARRATIVE: CASE EVENT DATE: 20200121
